FAERS Safety Report 4970081-5 (Version None)
Quarter: 2006Q2

REPORT INFORMATION
  Report Type: 
  Country: None (occurrence: None)
  Receive Date: 20060406
  Receipt Date: 20060322
  Transmission Date: 20061013
  Serious: Yes (Hospitalization)
  Sender: FDA-Public Use
  Company Number: US200602003020

PATIENT
  Age: 53 Year
  Sex: Male

DRUGS (4)
  1. ALIMTA [Suspect]
     Dosage: 500 MG/M2
     Dates: start: 20060202
  2. CYANOCOBALAMIN [Concomitant]
  3. FOLIC ACID [Concomitant]
  4. DEXAMETHASONE [Concomitant]

REACTIONS (1)
  - PERIPHERAL MOTOR NEUROPATHY [None]
